FAERS Safety Report 5959374-2 (Version None)
Quarter: 2008Q4

REPORT INFORMATION
  Report Type: 
  Country: None (occurrence: None)
  Receive Date: 20081117
  Receipt Date: 20081106
  Transmission Date: 20090506
  Serious: Yes (Hospitalization)
  Sender: FDA-Public Use
  Company Number: 2007-02786

PATIENT
  Age: 62 Year
  Sex: Male
  Weight: 56 kg

DRUGS (14)
  1. VELCADE [Suspect]
     Indication: MULTIPLE MYELOMA
     Dosage: 1.00 MG/M2, INTRAVENOUS
     Route: 042
     Dates: start: 20070803, end: 20071018
  2. THALIDOMIDE [Suspect]
     Indication: MULTIPLE MYELOMA
     Dosage: 100.00 MG, ORAL
     Route: 048
     Dates: start: 20070803, end: 20071018
  3. DEXAMETHASONE TAB [Suspect]
     Indication: MULTIPLE MYELOMA
     Dosage: 40.00 MG, INTRAVENOUS
     Route: 042
     Dates: start: 20070803, end: 20071018
  4. SODIUM CHLORIDE [Concomitant]
  5. AMINO ACIDS [Concomitant]
  6. DEXTROSE INFUSION FLUID 5% (GLUCOSE) [Concomitant]
  7. PAMIDRONATE DISODIUM [Concomitant]
  8. GABAPENTIN [Concomitant]
  9. METOCLOPRAMIDE [Concomitant]
  10. ECABET MONOSODIUM (ECABET MONOSODIUM) [Concomitant]
  11. ACETYLSALICYLIC ACID SRT [Concomitant]
  12. MAGNESIUM OXIDE (MAGNESIUM OXIDE) [Concomitant]
  13. FUROSEMIDE [Concomitant]
  14. ACETYLCYSTEINE [Concomitant]

REACTIONS (1)
  - ISCHAEMIC CARDIOMYOPATHY [None]
